FAERS Safety Report 6498529-8 (Version None)
Quarter: 2009Q4

REPORT INFORMATION
  Report Type: 
  Country: None (occurrence: None)
  Receive Date: 20091215
  Receipt Date: 20091204
  Transmission Date: 20100525
  Serious: Yes (Life-Threatening, Hospitalization)
  Sender: FDA-Public Use
  Company Number: GB-MERCK-0912GBR00026

PATIENT
  Age: 73 Year
  Sex: Female

DRUGS (10)
  1. FOSAMAX [Suspect]
     Indication: OSTEOPOROSIS
     Route: 048
     Dates: start: 20090928, end: 20091119
  2. DICLOFENAC SODIUM AND MISOPROSTOL [Suspect]
     Route: 048
     Dates: start: 20030507, end: 20091119
  3. AMOXICILLIN [Concomitant]
     Route: 065
  4. BENDROFLUMETHIAZIDE [Concomitant]
     Route: 065
  5. CALCIUM (UNSPECIFIED) AND VITAMIN D (UNSPECIFIED) [Concomitant]
     Route: 065
  6. CODEINE PHOSPHATE [Concomitant]
     Route: 065
  7. DOTHIEPIN HYDROCHLORIDE [Concomitant]
     Route: 065
  8. VASOTEC [Concomitant]
     Route: 048
  9. IPRATROPIUM BROMIDE [Concomitant]
     Route: 065
  10. FLUTICASONE PROPIONATE AND SALMETEROL XINAFOATE [Concomitant]
     Route: 065

REACTIONS (3)
  - ELECTROMECHANICAL DISSOCIATION [None]
  - GASTRIC ULCER HAEMORRHAGE [None]
  - HAEMATEMESIS [None]
